FAERS Safety Report 8353222-1 (Version None)
Quarter: 2012Q2

REPORT INFORMATION
  Report Type: 
  Country: None (occurrence: None)
  Receive Date: 20120511
  Receipt Date: 20120509
  Transmission Date: 20120825
  Serious: Yes (Death, Congenital Anomaly)
  Sender: FDA-Public Use
  Company Number: FR-ABBOTT-08P-056-0471694-00

PATIENT
  Sex: Female

DRUGS (2)
  1. EMTRICITABINE/TENOFOVIR DISOPROXIL FUMARATE [Suspect]
     Indication: MATERNAL EXPOSURE TIMING UNSPECIFIED
     Route: 064
  2. KALETRA [Suspect]
     Indication: MATERNAL EXPOSURE TIMING UNSPECIFIED
     Route: 064

REACTIONS (19)
  - ABORTION INDUCED [None]
  - EAR MALFORMATION [None]
  - HOLOPROSENCEPHALY [None]
  - MICROPHTHALMOS [None]
  - CONGENITAL NOSE MALFORMATION [None]
  - MENINGEAL DISORDER [None]
  - DYSMORPHISM [None]
  - HYPERTELORISM OF ORBIT [None]
  - FOETAL MALFORMATION [None]
  - CONGENITAL EYELID MALFORMATION [None]
  - LOW SET EARS [None]
  - OLFACTORY NERVE DISORDER [None]
  - MACROCEPHALY [None]
  - CEREBRAL VENTRICLE DILATATION [None]
  - BRACHYCEPHALY [None]
  - SKULL MALFORMATION [None]
  - RETROGNATHIA [None]
  - CONGENITAL CENTRAL NERVOUS SYSTEM ANOMALY [None]
  - FOETAL EXPOSURE DURING PREGNANCY [None]
